FAERS Safety Report 20734303 (Version 4)
Quarter: 2022Q2

REPORT INFORMATION
  Report Type: Spontaneous
  Country: US (occurrence: US)
  Receive Date: 20220421
  Receipt Date: 20220523
  Transmission Date: 20220720
  Serious: Yes (Hospitalization)
  Sender: FDA-Public Use
  Company Number: US-JNJFOC-20220431913

PATIENT
  Age: 84 Year
  Sex: Female
  Weight: 53.2 kg

DRUGS (3)
  1. OPSUMIT [Suspect]
     Active Substance: MACITENTAN
     Indication: Product used for unknown indication
     Route: 048
  2. UPTRAVI [Suspect]
     Active Substance: SELEXIPAG
     Indication: Pulmonary hypertension
     Route: 048
  3. ELIQUIS [Concomitant]
     Active Substance: APIXABAN

REACTIONS (3)
  - Cardiac failure [Unknown]
  - Fluid retention [Unknown]
  - Anaemia [Unknown]

NARRATIVE: CASE EVENT DATE: 20220413
